FAERS Safety Report 5079110-4 (Version None)
Quarter: 2006Q3

REPORT INFORMATION
  Report Type: 
  Country: None (occurrence: None)
  Receive Date: 20060720
  Receipt Date: 20050808
  Transmission Date: 20061208
  Serious: Yes (Hospitalization, Other)
  Sender: FDA-Public Use
  Company Number: 2005113163

PATIENT
  Age: 65 Year
  Sex: Female
  Weight: 58.0604 kg

DRUGS (5)
  1. CELEBREX [Suspect]
     Indication: MYALGIA
     Dosage: 400 MG (200 MG, 2 IN 1 D), ORAL
     Route: 048
     Dates: start: 20000101
  2. EVISTA [Concomitant]
  3. FOSAMAX [Concomitant]
  4. PREDNISONE TAB [Concomitant]
  5. SPIRIVA [Concomitant]

REACTIONS (1)
  - PNEUMONIA [None]
